FAERS Safety Report 21648268 (Version 1)
Quarter: 2022Q4

REPORT INFORMATION
  Report Type: Spontaneous
  Country: CA (occurrence: CA)
  Receive Date: 20221128
  Receipt Date: 20221128
  Transmission Date: 20230113
  Serious: Yes (Other)
  Sender: FDA-Public Use
  Company Number: CA-009507513-1911CAN009911

PATIENT
  Sex: Female

DRUGS (8)
  1. FOLLITROPIN BETA [Suspect]
     Active Substance: FOLLITROPIN BETA
     Indication: In vitro fertilisation
     Dosage: FIRST CYCLE
     Route: 065
     Dates: start: 201805, end: 2018
  2. FOLLITROPIN BETA [Suspect]
     Active Substance: FOLLITROPIN BETA
     Dosage: SECOND CYCLE
     Route: 065
     Dates: start: 201811
  3. FOLLITROPIN BETA [Suspect]
     Active Substance: FOLLITROPIN BETA
     Dosage: DOSAGE FORM: LIQUID INTRAMUSCULAR
  4. ORGALUTRAN [Suspect]
     Active Substance: GANIRELIX ACETATE
     Indication: In vitro fertilisation
     Dosage: ONCE A DAY
     Dates: start: 20191112
  5. ORGALUTRAN [Suspect]
     Active Substance: GANIRELIX ACETATE
     Dosage: SINGLE DOSE PREFILLED SYRINGE 250 UG PER 0.5 ML, DOSAGE FORM:  SOLUTION SUBCUTANEOUS, 1 DOSAGE FORM
     Route: 065
  6. MENOPUR [Suspect]
     Active Substance: FOLLITROPIN\LUTEINIZING HORMONE
     Indication: In vitro fertilisation
     Dosage: FIRST CYCLE
     Dates: start: 201805, end: 2018
  7. MENOPUR [Suspect]
     Active Substance: FOLLITROPIN\LUTEINIZING HORMONE
     Dosage: SECOND CYCLE
     Dates: start: 201811
  8. MENOPUR [Suspect]
     Active Substance: FOLLITROPIN\LUTEINIZING HORMONE
     Dosage: DOSAGE FORM : POWDER FOR SOLUTION SUBCUTANEOUS
     Route: 065

REACTIONS (2)
  - Ovarian cancer recurrent [Unknown]
  - Drug ineffective [Unknown]

NARRATIVE: CASE EVENT DATE: 20180101
